FAERS Safety Report 19486208 (Version 1)
Quarter: 2021Q3

REPORT INFORMATION
  Report Type: Spontaneous
  Country: DE (occurrence: DE)
  Receive Date: 20210702
  Receipt Date: 20210702
  Transmission Date: 20211014
  Serious: Yes (Other)
  Sender: FDA-Public Use
  Company Number: DE-JNJFOC-20210601623

PATIENT
  Age: 84 Year
  Sex: Female
  Weight: 70 kg

DRUGS (14)
  1. NOVAMINSULFON 500 MG [Concomitant]
     Active Substance: METAMIZOLE
     Dosage: 1?1?1
     Dates: start: 20210129
  2. TAVOR 0,5 MG [Concomitant]
     Indication: PANIC ATTACK
     Dosage: BEI BEDARF 4X1/TAG; AS REQUIRED
     Route: 065
  3. ZOPICLON ? 1 A PHARMA 3,75 MG [Concomitant]
     Dosage: 0?0?1
     Route: 065
     Dates: start: 20201218
  4. ELIQUIS 2,5 MG [Concomitant]
     Dosage: 1?0?1
     Dates: start: 20201218
  5. TILIDIN AL COMP. 50 MG/4 MG [Concomitant]
     Dosage: 1?0?1,50 MG/4 MG
     Route: 065
     Dates: start: 20201218
  6. RAMILICH 2,5 MG [Concomitant]
     Dosage: 1?0?0
     Route: 065
     Dates: start: 20201218
  7. MACROGOL ABZ [Concomitant]
     Dosage: MAXIMAL 3X1/TAG; AS REQUIRED
  8. TAVOR 0,5 MG [Concomitant]
     Indication: ANXIETY
  9. RISPERDAL [Suspect]
     Active Substance: RISPERIDONE
     Indication: PANIC ATTACK
  10. MAGNESIUM VERLA N DRAGEES [Concomitant]
     Dosage: MAXIMAL 3X1/TAG; AS REQUIRED
     Dates: start: 20210129
  11. TORASEMID AL 10 MG [Concomitant]
     Dosage: 1?0?1
     Route: 065
     Dates: start: 20210525
  12. VIGANTOL 1000 I.E. VITAMIN D3 TABLETTEN [Concomitant]
     Dosage: 1?0?0
     Route: 065
     Dates: start: 20210120
  13. RISPERDAL [Suspect]
     Active Substance: RISPERIDONE
     Indication: ANXIETY
     Dosage: 2?0?2.5
     Route: 065
     Dates: start: 20210223
  14. AMLODIPIN 5 MG [Concomitant]
     Active Substance: AMLODIPINE BESYLATE
     Dosage: 1?0?0
     Dates: start: 20201218

REACTIONS (17)
  - Communication disorder [Recovering/Resolving]
  - Disturbance in social behaviour [Not Recovered/Not Resolved]
  - Loss of personal independence in daily activities [Not Recovered/Not Resolved]
  - Fall [Not Recovered/Not Resolved]
  - Tremor [Not Recovered/Not Resolved]
  - Urinary incontinence [Not Recovered/Not Resolved]
  - Disturbance in attention [Not Recovered/Not Resolved]
  - Restlessness [Not Recovered/Not Resolved]
  - Asthenia [Not Recovered/Not Resolved]
  - Tremor [Recovering/Resolving]
  - Suicidal ideation [Unknown]
  - Decreased interest [Not Recovered/Not Resolved]
  - Social avoidant behaviour [Not Recovered/Not Resolved]
  - Memory impairment [Not Recovered/Not Resolved]
  - Dyskinesia [Not Recovered/Not Resolved]
  - Salivary hypersecretion [Recovering/Resolving]
  - Emotional poverty [Recovering/Resolving]

NARRATIVE: CASE EVENT DATE: 202103
